FAERS Safety Report 5215302-9 (Version None)
Quarter: 2007Q1

REPORT INFORMATION
  Report Type: 
  Country: None (occurrence: None)
  Receive Date: 20070116
  Receipt Date: 20070109
  Transmission Date: 20070707
  Serious: Yes (Death)
  Sender: FDA-Public Use
  Company Number: HQWYE922209NOV06

PATIENT
  Age: 36 Year
  Sex: Male

DRUGS (8)
  1. MYLOTARG [Suspect]
     Indication: ACUTE MYELOID LEUKAEMIA
     Dosage: 9 MG/M^2 1X PER 1 DAY
     Route: 041
     Dates: start: 20061013, end: 20061013
  2. MORPHINE HYDROCHLORIDE (HYDROCHLORIDE) [Concomitant]
  3. VOLTAREN-XR [Concomitant]
  4. FAMOTIDINE [Concomitant]
  5. CONIEL (BENIDIPINE HYDROCHLORIDE) [Concomitant]
  6. DIFLUCAN (FLUCANAZOLE) [Concomitant]
  7. URSO (URSODEOXYCHOLIC ACID) [Concomitant]
  8. POLYMYXIN B SULFATE [Concomitant]

REACTIONS (4)
  - BODY TEMPERATURE INCREASED [None]
  - NEUTROPHIL COUNT DECREASED [None]
  - PLATELET COUNT DECREASED [None]
  - WHITE BLOOD CELL COUNT DECREASED [None]
